FAERS Safety Report 25348482 (Version 1)
Quarter: 2025Q2

REPORT INFORMATION
  Report Type: Spontaneous
  Country: AU (occurrence: AU)
  Receive Date: 20250522
  Receipt Date: 20250522
  Transmission Date: 20250717
  Serious: Yes (Hospitalization, Other)
  Sender: ABBVIE
  Company Number: AU-ABBVIE-6284602

PATIENT
  Age: 30 Year
  Sex: Female

DRUGS (6)
  1. ADALIMUMAB [Suspect]
     Active Substance: ADALIMUMAB
     Indication: Pyoderma gangrenosum
     Route: 058
     Dates: start: 202411
  2. ADALIMUMAB [Suspect]
     Active Substance: ADALIMUMAB
     Route: 058
  3. BETAMETHASONE DIPROPIONATE [Concomitant]
     Active Substance: BETAMETHASONE DIPROPIONATE
     Indication: Pyoderma gangrenosum
  4. MYCOPHENOLIC ACID [Concomitant]
     Active Substance: MYCOPHENOLIC ACID
     Indication: Pyoderma gangrenosum
  5. Potassium Permanganate Bell [Concomitant]
     Indication: Pyoderma gangrenosum
  6. PREDNISOLONE [Concomitant]
     Active Substance: PREDNISOLONE
     Indication: Pyoderma gangrenosum

REACTIONS (7)
  - Pyoderma gangrenosum [Unknown]
  - Wound infection pseudomonas [Unknown]
  - Pain [Unknown]
  - Ulcer [Unknown]
  - Off label use [Unknown]
  - Adverse drug reaction [Unknown]
  - Weight increased [Unknown]
